FAERS Safety Report 7947177-9 (Version None)
Quarter: 2011Q4

REPORT INFORMATION
  Report Type: 
  Country: None (occurrence: None)
  Receive Date: 20111129
  Receipt Date: 20111118
  Transmission Date: 20120403
  Serious: Yes (Hospitalization)
  Sender: FDA-Public Use
  Company Number: FR-ROCHE-1016370

PATIENT
  Age: 65 Year
  Sex: Male

DRUGS (1)
  1. ALTEPLASE [Suspect]
     Indication: ISCHAEMIC STROKE
     Dosage: 10% AS INITIAL BOLUS
     Route: 042

REACTIONS (6)
  - SPINAL CORD COMPRESSION [None]
  - HYPOAESTHESIA [None]
  - EXTRADURAL HAEMATOMA [None]
  - HEMIPLEGIA [None]
  - HORNER'S SYNDROME [None]
  - NEUROLOGICAL DECOMPENSATION [None]
